FAERS Safety Report 4511039-X (Version None)
Quarter: 2004Q4

REPORT INFORMATION
  Report Type: 
  Country: None (occurrence: None)
  Receive Date: 20041018
  Receipt Date: 20040913
  Transmission Date: 20050328
  Serious: No
  Sender: FDA-Public Use
  Company Number: 209224

PATIENT
  Age: 42 Year
  Sex: Male
  Weight: 142 kg

DRUGS (3)
  1. XOLAIR [Suspect]
     Dosage: 300 MG, Q2W, SUBCUTANEOUS
     Route: 058
     Dates: start: 20040810
  2. GLUCOPHAGE [Concomitant]
  3. AMARYL [Concomitant]

REACTIONS (1)
  - RHINORRHOEA [None]
